FAERS Safety Report 11393943 (Version 1)
Quarter: 2015Q3

REPORT INFORMATION
  Report Type: Spontaneous
  Country: US (occurrence: None)
  Receive Date: 20150817
  Receipt Date: 20150817
  Transmission Date: 20151125
  Serious: Yes (Other)
  Sender: FDA-Public Use
  Company Number: None

PATIENT
  Age: 21 Year
  Sex: Female
  Weight: 58.97 kg

DRUGS (8)
  1. CYMBALTA [Concomitant]
     Active Substance: DULOXETINE HYDROCHLORIDE
  2. PROBIOTICS [Concomitant]
     Active Substance: PROBIOTICS NOS
  3. PRENATALS [Concomitant]
  4. JUNGLE JUICE CBD OIL 1ML JUST CHILL PRODUCTS [Suspect]
     Active Substance: CANNABIDIOL
     Indication: SLEEP DISORDER THERAPY
     Dosage: 2 PUFFS AS NEEDED
     Route: 055
     Dates: start: 20150812, end: 20150812
  5. ADDERALL [Concomitant]
     Active Substance: AMPHETAMINE ASPARTATE\AMPHETAMINE SULFATE\DEXTROAMPHETAMINE SACCHARATE\DEXTROAMPHETAMINE SULFATE
  6. VITAMIN B [Concomitant]
     Active Substance: VITAMIN B
  7. TRAMADOL. [Concomitant]
     Active Substance: TRAMADOL
  8. JUNGLE JUICE CBD OIL 1ML JUST CHILL PRODUCTS [Suspect]
     Active Substance: CANNABIDIOL
     Indication: PAIN MANAGEMENT
     Dosage: 2 PUFFS AS NEEDED
     Route: 055
     Dates: start: 20150812, end: 20150812

REACTIONS (8)
  - Angina pectoris [None]
  - Tinnitus [None]
  - Fear [None]
  - Headache [None]
  - Muscle twitching [None]
  - Visual impairment [None]
  - Palpitations [None]
  - Hearing impaired [None]

NARRATIVE: CASE EVENT DATE: 20150812
